FAERS Safety Report 13451106 (Version 1)
Quarter: 2017Q2

REPORT INFORMATION
  Report Type: Spontaneous
  Country: FR (occurrence: FR)
  Receive Date: 20170418
  Receipt Date: 20170418
  Transmission Date: 20170830
  Serious: Yes (Death, Other)
  Sender: FDA-Public Use
  Company Number: FR-ACCORD-050334

PATIENT
  Age: 61 Year
  Sex: Male

DRUGS (6)
  1. LOVENOX [Concomitant]
     Active Substance: ENOXAPARIN SODIUM
  2. PROPRANOLOL [Concomitant]
     Active Substance: PROPRANOLOL HYDROCHLORIDE
     Dosage: ONE DOSAGE FORM IN THE MORNING
  3. OXALIPLATIN. [Suspect]
     Active Substance: OXALIPLATIN
     Indication: COLON CANCER METASTATIC
     Dosage: BATCH: OX21607X (OXALIPLATIN HOSPIRA)?DOSE 170 MG WITHIN 2 HRS.
     Route: 042
     Dates: end: 201606
  4. ERBITUX [Suspect]
     Active Substance: CETUXIMAB
     Indication: COLON CANCER METASTATIC
     Dates: end: 201606
  5. CALCIUM LEVOFOLINATE ZENTIVA [Suspect]
     Active Substance: LEVOLEUCOVORIN CALCIUM
     Indication: PRODUCT USED FOR UNKNOWN INDICATION
     Dosage: WITHIN 2 HOURS.
     Route: 042
     Dates: end: 201606
  6. FLUOROURACIL. [Suspect]
     Active Substance: FLUOROURACIL
     Indication: COLON CANCER METASTATIC
     Dosage: AFTER 15 MINS CONT.PERFUSION OF 2,400 MG/M2 WITHIN 2 DAYS.?BATCH: PS03435?ROUTE: INTRAVENOUS
     Route: 042
     Dates: end: 201606

REACTIONS (8)
  - Interstitial lung disease [Unknown]
  - Septic shock [Fatal]
  - Nervous system disorder [Unknown]
  - Respiratory distress [Unknown]
  - Pulmonary embolism [Unknown]
  - Distal intestinal obstruction syndrome [Unknown]
  - Acute kidney injury [Unknown]
  - Metabolic acidosis [Unknown]

NARRATIVE: CASE EVENT DATE: 201605
